FAERS Safety Report 9797486 (Version 1)
Quarter: 2014Q1

REPORT INFORMATION
  Report Type: Spontaneous
  Country: US (occurrence: None)
  Receive Date: 20140102
  Receipt Date: 20140102
  Transmission Date: 20141002
  Serious: Yes (Other)
  Sender: FDA-Public Use
  Company Number: None

PATIENT
  Age: 44 Year
  Sex: Male
  Weight: 79.38 kg

DRUGS (1)
  1. LEXAPRO 10MG (GENERIC) [Suspect]
     Indication: ANXIETY
     Route: 048

REACTIONS (4)
  - Headache [None]
  - Influenza [None]
  - Hot flush [None]
  - Neuralgia [None]
